FAERS Safety Report 24571161 (Version 6)
Quarter: 2025Q1

REPORT INFORMATION
  Report Type: Spontaneous
  Country: US (occurrence: US)
  Receive Date: 20241101
  Receipt Date: 20250325
  Transmission Date: 20250408
  Serious: No
  Sender: UCB
  Company Number: US-UCBSA-2024055533

PATIENT
  Sex: Male

DRUGS (3)
  1. BIMZELX [Suspect]
     Active Substance: BIMEKIZUMAB-BKZX
     Indication: Product used for unknown indication
     Route: 058
  2. ZORYVE [Concomitant]
     Active Substance: ROFLUMILAST
     Indication: Psoriasis
     Route: 061
     Dates: start: 202405
  3. DERMA SMOOTHE/FS [Concomitant]
     Indication: Psoriasis
     Route: 061
     Dates: start: 202210

REACTIONS (1)
  - Depression [Recovered/Resolved]
